FAERS Safety Report 8977152 (Version 1)
Quarter: 2012Q4

REPORT INFORMATION
  Report Type: 
  Country: US (occurrence: US)
  Receive Date: 20121220
  Receipt Date: 20121220
  Transmission Date: 20130627
  Serious: Yes (Hospitalization)
  Sender: FDA-Public Use
  Company Number: US-ELI_LILLY_AND_COMPANY-US201212004594

PATIENT
  Sex: Female

DRUGS (19)
  1. FORTEO [Suspect]
     Dosage: UNK
     Dates: start: 201210
  2. COUMADIN [Concomitant]
     Dosage: 5 mg, UNK
  3. METHOTREXATE [Concomitant]
     Dosage: 12.5 mg, weekly (1/W)
  4. LEUCOVORIN [Concomitant]
     Dosage: UNK, weekly (1/W)
  5. OMEPRAZOLE [Concomitant]
     Dosage: 20 mg, qd
  6. POTASSIUM [Concomitant]
     Dosage: 20 mg, qd
  7. BUMEX [Concomitant]
     Dosage: 2 mg, qd
  8. PREDNISONE [Concomitant]
     Dosage: 10 mg, qd
  9. DILTIAZEM [Concomitant]
     Indication: CARDIAC DISORDER
     Dosage: 300 mg, qd
  10. ASPIRIN [Concomitant]
     Dosage: 81 mg, qd
  11. CALCIUM [Concomitant]
     Dosage: 1200 mg, qd
  12. VITAMINS [Concomitant]
     Dosage: 1000 mg, qd
  13. MS CONTIN [Concomitant]
     Dosage: 15 mg, bid
  14. MS CONTIN [Concomitant]
     Dosage: 15 mg, every 4 hrs
  15. FOLIC ACID [Concomitant]
     Dosage: 1 mg, qd
  16. B12 [Concomitant]
     Dosage: UNK, monthly (1/M)
  17. B12 [Concomitant]
     Dosage: UNK, qd
     Route: 048
  18. VITAMIN C [Concomitant]
     Dosage: 500 mg, qd
  19. FLORASTOR [Concomitant]
     Dosage: UNK, bid

REACTIONS (18)
  - Abdominal pain upper [Unknown]
  - Nausea [Unknown]
  - Rash [Unknown]
  - Dyspnoea [Unknown]
  - Blood pressure increased [Unknown]
  - Atrial fibrillation [Unknown]
  - Memory impairment [Unknown]
  - Hot flush [Unknown]
  - Fear [Unknown]
  - Malaise [Unknown]
  - Erythema [Unknown]
  - Flushing [Unknown]
  - Injection site bruising [Unknown]
  - Urinary tract infection [Unknown]
  - Pain [Unknown]
  - Gallbladder disorder [Unknown]
  - Nephrolithiasis [Unknown]
  - Bone loss [Unknown]
